FAERS Safety Report 9860594 (Version 2)
Quarter: 2014Q1

REPORT INFORMATION
  Report Type: Spontaneous
  Country: CA (occurrence: CA)
  Receive Date: 20140202
  Receipt Date: 20140202
  Transmission Date: 20141002
  Serious: No
  Sender: FDA-Public Use
  Company Number: CA-ALLERGAN-1208511US

PATIENT
  Age: 51 Year
  Sex: Female

DRUGS (4)
  1. BOTOX [Suspect]
     Indication: MEDICAL OBSERVATION
     Dosage: UNK
     Route: 030
     Dates: start: 20100525, end: 20100525
  2. BOTOX [Suspect]
     Indication: TORTICOLLIS
  3. ATIVAN [Concomitant]
     Indication: PAIN
     Dosage: UNK
     Route: 048
  4. ASACOL [Concomitant]
     Indication: CROHN^S DISEASE
     Dosage: UNK
     Route: 048

REACTIONS (14)
  - Depression [Not Recovered/Not Resolved]
  - Physical examination abnormal [Not Recovered/Not Resolved]
  - Skin wrinkling [Not Recovered/Not Resolved]
  - Skin wrinkling [Not Recovered/Not Resolved]
  - Stress [Not Recovered/Not Resolved]
  - Skin tightness [Not Recovered/Not Resolved]
  - Burning sensation [Recovering/Resolving]
  - Pain [Recovering/Resolving]
  - Facial paresis [Not Recovered/Not Resolved]
  - Paraesthesia [Not Recovered/Not Resolved]
  - Therapeutic response decreased [Unknown]
  - Eyelid ptosis [Not Recovered/Not Resolved]
  - Skin injury [Unknown]
  - Tremor [Unknown]
